FAERS Safety Report 17433610 (Version 1)
Quarter: 2020Q1

REPORT INFORMATION
  Report Type: Spontaneous
  Country: FR (occurrence: FR)
  Receive Date: 20200219
  Receipt Date: 20200219
  Transmission Date: 20200409
  Serious: Yes (Other)
  Sender: FDA-Public Use
  Company Number: FR-GLAXOSMITHKLINE-FR2020025419

PATIENT
  Age: 38 Year
  Sex: Female
  Weight: 59 kg

DRUGS (3)
  1. CYTARABINE. [Suspect]
     Active Substance: CYTARABINE
     Indication: LYMPHANGIOLEIOMYOMATOSIS
     Dosage: J1?J3?J5
     Route: 041
     Dates: start: 20190904, end: 20190908
  2. RYDAPT [Suspect]
     Active Substance: MIDOSTAURIN
     Indication: LYMPHANGIOLEIOMYOMATOSIS
     Dosage: UNK
     Route: 048
     Dates: start: 20190912, end: 20190918
  3. WELLVONE [Suspect]
     Active Substance: ATOVAQUONE
     Indication: INFECTION PROPHYLAXIS
     Dosage: UNK
     Route: 048
     Dates: start: 20190912, end: 20190919

REACTIONS (3)
  - Cholestasis [Recovered/Resolved]
  - Jaundice [Recovered/Resolved]
  - Hepatocellular injury [Recovered/Resolved]

NARRATIVE: CASE EVENT DATE: 20190911
